FAERS Safety Report 12941403 (Version 1)
Quarter: 2016Q4

REPORT INFORMATION
  Report Type: Spontaneous
  Country: US (occurrence: US)
  Receive Date: 20161115
  Receipt Date: 20161115
  Transmission Date: 20170207
  Serious: Yes (Hospitalization)
  Sender: FDA-Public Use
  Company Number: None

PATIENT
  Age: 76 Year
  Sex: Female
  Weight: 67.1 kg

DRUGS (10)
  1. LIPITOR [Concomitant]
     Active Substance: ATORVASTATIN CALCIUM
  2. SYNTHROID [Concomitant]
     Active Substance: LEVOTHYROXINE SODIUM
  3. ZESTRIL [Concomitant]
     Active Substance: LISINOPRIL
  4. AMLODIPINE [Concomitant]
     Active Substance: AMLODIPINE BESYLATE
  5. LOPRESSOR [Concomitant]
     Active Substance: METOPROLOL TARTRATE
  6. APIXIBAN [Suspect]
     Active Substance: APIXABAN
     Indication: ATRIAL FIBRILLATION
     Dosage: CHRONIC
     Route: 048
  7. ASPIRIN. [Concomitant]
     Active Substance: ASPIRIN
  8. COLACE [Concomitant]
     Active Substance: DOCUSATE SODIUM
  9. MYRBETRIQ [Concomitant]
     Active Substance: MIRABEGRON
  10. PAXL [Concomitant]

REACTIONS (2)
  - Cerebral haemorrhage [None]
  - Cerebrovascular accident [None]

NARRATIVE: CASE EVENT DATE: 20151113
